FAERS Safety Report 8201372-2 (Version None)
Quarter: 2012Q1

REPORT INFORMATION
  Report Type: 
  Country: None (occurrence: None)
  Receive Date: 20120312
  Receipt Date: 20120305
  Transmission Date: 20120608
  Serious: Yes (Hospitalization)
  Sender: FDA-Public Use
  Company Number: US-B.I. PHARMACEUTICALS,INC./RIDGEFIELD-2012-BP-04155BP

PATIENT
  Sex: Female

DRUGS (3)
  1. VESICARE [Suspect]
     Indication: URINARY INCONTINENCE
  2. PRADAXA [Suspect]
     Indication: ATRIAL FIBRILLATION
     Dosage: 300 MG
     Route: 048
     Dates: start: 20110201
  3. VERAPAMIL [Concomitant]
     Indication: ATRIAL FIBRILLATION
     Dates: start: 20110601

REACTIONS (7)
  - BLOOD SODIUM DECREASED [None]
  - URINARY INCONTINENCE [None]
  - CONSTIPATION [None]
  - OEDEMA PERIPHERAL [None]
  - DYSPEPSIA [None]
  - ABDOMINAL PAIN [None]
  - BLOOD POTASSIUM DECREASED [None]
